FAERS Safety Report 10776959 (Version 5)
Quarter: 2017Q4

REPORT INFORMATION
  Report Type: Report from Study
  Country: US (occurrence: US)
  Receive Date: 20150209
  Receipt Date: 20171004
  Transmission Date: 20180320
  Serious: Yes (Hospitalization, Other)
  Sender: FDA-Public Use
  Company Number: PHEH2015US002442

PATIENT
  Sex: Male

DRUGS (2)
  1. GILENYA [Suspect]
     Active Substance: FINGOLIMOD HYDROCHLORIDE
     Indication: MULTIPLE SCLEROSIS
     Dosage: 0.5 MG, QD
     Route: 048
     Dates: start: 20110901
  2. GILENYA [Suspect]
     Active Substance: FINGOLIMOD HYDROCHLORIDE
     Dosage: 0.5 MG, BID
     Route: 048

REACTIONS (15)
  - Haemorrhage [Unknown]
  - Muscular weakness [Unknown]
  - Wrist fracture [Unknown]
  - Confusional state [Unknown]
  - Urinary tract infection [Unknown]
  - Multiple sclerosis [Unknown]
  - Pain [Unknown]
  - Gait disturbance [Unknown]
  - Amnesia [Unknown]
  - Implant site infection [Unknown]
  - Tooth loss [Unknown]
  - Fall [Unknown]
  - Prostatomegaly [Unknown]
  - Dysuria [Unknown]
  - Prescribed overdose [Unknown]

NARRATIVE: CASE EVENT DATE: 2014
